FAERS Safety Report 13893657 (Version 2)
Quarter: 2017Q3

REPORT INFORMATION
  Report Type: Spontaneous
  Country: CA (occurrence: CA)
  Receive Date: 20170822
  Receipt Date: 20170919
  Transmission Date: 20171127
  Serious: Yes (Disabling, Other)
  Sender: FDA-Public Use
  Company Number: CA-PFIZER INC-2017360842

PATIENT
  Age: 49 Year
  Sex: Female

DRUGS (16)
  1. ESCITALOPRAM [Suspect]
     Active Substance: ESCITALOPRAM OXALATE
     Dosage: 60 MG, DAILY
  2. NOREPINEPHRINE BITARTRATE. [Suspect]
     Active Substance: NOREPINEPHRINE BITARTRATE
     Dosage: 40 MCG/MINUTE
  3. NOREPINEPHRINE BITARTRATE. [Suspect]
     Active Substance: NOREPINEPHRINE BITARTRATE
     Dosage: 10 MCG/MINUTE
  4. ACTIVATED CHARCOAL [Concomitant]
     Active Substance: ACTIVATED CHARCOAL
     Indication: GASTRIC LAVAGE
     Dosage: 50 G, UNK
  5. NOREPINEPHRINE BITARTRATE. [Suspect]
     Active Substance: NOREPINEPHRINE BITARTRATE
     Indication: BLOOD PRESSURE MEASUREMENT
     Dosage: 30 MCG/MINUTE
  6. ADRENALINE /00003901/ [Suspect]
     Active Substance: EPINEPHRINE
     Dosage: 25 MCG/MINUTE
  7. INSULIN [Concomitant]
     Active Substance: INSULIN NOS
     Dosage: 70 IU, UNK
  8. GLUCOSE [Suspect]
     Active Substance: DEXTROSE
     Dosage: UNK
     Route: 040
  9. RISPERIDONE. [Suspect]
     Active Substance: RISPERIDONE
     Dosage: 6 MG, DAILY
  10. GLUCOSE [Suspect]
     Active Substance: DEXTROSE
     Indication: RESUSCITATION
  11. ADRENALINE /00003901/ [Suspect]
     Active Substance: EPINEPHRINE
     Indication: BLOOD PRESSURE MEASUREMENT
     Dosage: 30 MCG/MINUTE
  12. ADRENALINE /00003901/ [Suspect]
     Active Substance: EPINEPHRINE
     Dosage: 40 MCG/MINUTE
  13. AMLODIPINE BESILATE [Suspect]
     Active Substance: AMLODIPINE BESYLATE
     Dosage: 150 MG, DAILY
  14. VASOPRESSIN. [Suspect]
     Active Substance: VASOPRESSIN
     Indication: BLOOD PRESSURE MEASUREMENT
     Dosage: UNK (2.4 UNITS/HOUR)
  15. ADRENALINE /00003901/ [Suspect]
     Active Substance: EPINEPHRINE
     Dosage: 10 MCG/MINUTE
  16. INSULIN [Concomitant]
     Active Substance: INSULIN NOS
     Dosage: UNK, 70 UNITS/HOUR INFUSION
     Route: 040

REACTIONS (6)
  - Pulmonary oedema [Recovered/Resolved]
  - Hypoglycaemia [Recovered/Resolved]
  - Anuria [Recovered/Resolved]
  - Hypokalaemia [Recovered/Resolved]
  - Reversible cerebral vasoconstriction syndrome [Recovered/Resolved]
  - Optic atrophy [Not Recovered/Not Resolved]
